FAERS Safety Report 5678377-9 (Version None)
Quarter: 2008Q1

REPORT INFORMATION
  Report Type: 
  Country: None (occurrence: None)
  Receive Date: 20080320
  Receipt Date: 20080305
  Transmission Date: 20080703
  Serious: Yes (Other)
  Sender: FDA-Public Use
  Company Number: TRP_01087_2008

PATIENT
  Sex: Male

DRUGS (2)
  1. RIBAVIRIN [Suspect]
     Indication: HEPATITIS C VIRUS
     Dosage: DF, ORAL
     Route: 048
     Dates: start: 20080104
  2. PEGASYS [Suspect]
     Indication: HEPATITIS C VIRUS
     Dosage: DF, SUBCUTANEOUS
     Route: 058
     Dates: start: 20080104

REACTIONS (4)
  - DIZZINESS [None]
  - DYSPNOEA EXERTIONAL [None]
  - FEELING ABNORMAL [None]
  - LOSS OF CONSCIOUSNESS [None]
